FAERS Safety Report 4337248-0 (Version None)
Quarter: 2004Q2

REPORT INFORMATION
  Report Type: 
  Country: None (occurrence: None)
  Receive Date: 20040407
  Receipt Date: 20040322
  Transmission Date: 20050107
  Serious: Yes (Death)
  Sender: FDA-Public Use
  Company Number: WAES 0403GBR00228

PATIENT
  Age: 75 Year
  Sex: Female

DRUGS (1)
  1. STROMECTOL [Suspect]
     Indication: ACARODERMATITIS
     Dosage: 3 MG PO
     Route: 048
     Dates: start: 20040201

REACTIONS (2)
  - BRONCHOPNEUMONIA [None]
  - CHRONIC LYMPHOCYTIC LEUKAEMIA [None]
